FAERS Safety Report 8314590-X (Version None)
Quarter: 2012Q2

REPORT INFORMATION
  Report Type: 
  Country: None (occurrence: None)
  Receive Date: 20120426
  Receipt Date: 20120423
  Transmission Date: 20120825
  Serious: Yes (Death)
  Sender: FDA-Public Use
  Company Number: US-SHIRE-ALL1-2012-02068

PATIENT
  Age: 69 Year
  Sex: Male

DRUGS (1)
  1. LIALDA [Suspect]
     Indication: PRODUCT USED FOR UNKNOWN INDICATION
     Dosage: TWO 1.2 G, TABLETS1X/DAY:QD FOR A DAILY TOTAL OF 2.4 G
     Route: 048

REACTIONS (1)
  - DEATH [None]
